FAERS Safety Report 25183246 (Version 4)
Quarter: 2025Q2

REPORT INFORMATION
  Report Type: Report from Study
  Country: IT (occurrence: IT)
  Receive Date: 20250410
  Receipt Date: 20250617
  Transmission Date: 20250716
  Serious: Yes (Disabling, Other)
  Sender: TAKEDA
  Company Number: IT-TAKEDA-2020TUS060629

PATIENT
  Age: 42 Year
  Sex: Female
  Weight: 59 kg

DRUGS (25)
  1. VELAGLUCERASE ALFA [Suspect]
     Active Substance: VELAGLUCERASE ALFA
     Indication: Gaucher^s disease type I
  2. VELAGLUCERASE ALFA [Suspect]
     Active Substance: VELAGLUCERASE ALFA
     Dosage: 8 DOSAGE FORM, Q2WEEKS
     Dates: start: 1992
  3. VELAGLUCERASE ALFA [Suspect]
     Active Substance: VELAGLUCERASE ALFA
     Dosage: 8 DOSAGE FORM, Q2WEEKS
  4. VELAGLUCERASE ALFA [Suspect]
     Active Substance: VELAGLUCERASE ALFA
     Dosage: 7 DOSAGE FORM, Q2WEEKS
  5. VELAGLUCERASE ALFA [Suspect]
     Active Substance: VELAGLUCERASE ALFA
     Dosage: 8 DOSAGE FORM, Q2WEEKS
  6. VELAGLUCERASE ALFA [Suspect]
     Active Substance: VELAGLUCERASE ALFA
     Dosage: 8 DOSAGE FORM, Q2WEEKS
  7. VELAGLUCERASE ALFA [Suspect]
     Active Substance: VELAGLUCERASE ALFA
  8. VELAGLUCERASE ALFA [Suspect]
     Active Substance: VELAGLUCERASE ALFA
     Dosage: 8 DOSAGE FORM, Q2WEEKS
  9. VELAGLUCERASE ALFA [Suspect]
     Active Substance: VELAGLUCERASE ALFA
  10. VELAGLUCERASE ALFA [Suspect]
     Active Substance: VELAGLUCERASE ALFA
     Dosage: 8 DOSAGE FORM, Q2WEEKS
  11. VELAGLUCERASE ALFA [Suspect]
     Active Substance: VELAGLUCERASE ALFA
     Dosage: 8 DOSAGE FORM, Q2WEEKS
  12. VELAGLUCERASE ALFA [Suspect]
     Active Substance: VELAGLUCERASE ALFA
     Dosage: 8 DOSAGE FORM, Q2WEEKS
  13. VELAGLUCERASE ALFA [Suspect]
     Active Substance: VELAGLUCERASE ALFA
     Dosage: 8 DOSAGE FORM, Q2WEEKS
  14. VELAGLUCERASE ALFA [Suspect]
     Active Substance: VELAGLUCERASE ALFA
     Dosage: 8 DOSAGE FORM, Q2WEEKS
  15. VELAGLUCERASE ALFA [Suspect]
     Active Substance: VELAGLUCERASE ALFA
     Dosage: 8 DOSAGE FORM, Q2WEEKS
  16. VELAGLUCERASE ALFA [Suspect]
     Active Substance: VELAGLUCERASE ALFA
     Dosage: 8 DOSAGE FORM, Q2WEEKS
  17. VELAGLUCERASE ALFA [Suspect]
     Active Substance: VELAGLUCERASE ALFA
     Dosage: UNK, UNK Q2WEEKS
  18. VELAGLUCERASE ALFA [Suspect]
     Active Substance: VELAGLUCERASE ALFA
     Dosage: 8 DOSAGE FORM, Q2WEEKS
  19. VELAGLUCERASE ALFA [Suspect]
     Active Substance: VELAGLUCERASE ALFA
     Dosage: UNK UNK, Q2WEEKS
  20. VELAGLUCERASE ALFA [Suspect]
     Active Substance: VELAGLUCERASE ALFA
     Dosage: UNK UNK, Q2WEEKS
  21. VELAGLUCERASE ALFA [Suspect]
     Active Substance: VELAGLUCERASE ALFA
     Dosage: UNK UNK, Q2WEEKS
  22. PREDNISONE [Concomitant]
     Active Substance: PREDNISONE
     Dosage: 5 MILLIGRAM, QD
  23. PLAQUENIL [Concomitant]
     Active Substance: HYDROXYCHLOROQUINE SULFATE
     Dosage: 200 MILLIGRAM, QD
  24. FOLIC ACID [Concomitant]
     Active Substance: FOLIC ACID
  25. CIMZIA [Concomitant]
     Active Substance: CERTOLIZUMAB PEGOL

REACTIONS (14)
  - Rheumatoid arthritis [Not Recovered/Not Resolved]
  - Complex regional pain syndrome [Not Recovered/Not Resolved]
  - Bone marrow oedema [Not Recovered/Not Resolved]
  - Tendon disorder [Not Recovered/Not Resolved]
  - Product availability issue [Unknown]
  - Circumstance or information capable of leading to medication error [Not Recovered/Not Resolved]
  - Pain in extremity [Not Recovered/Not Resolved]
  - COVID-19 [Not Recovered/Not Resolved]
  - Pregnancy [Recovered/Resolved]
  - Extra dose administered [Recovered/Resolved]
  - Intentional dose omission [Not Recovered/Not Resolved]
  - Inappropriate schedule of product administration [Not Recovered/Not Resolved]
  - Off label use [Recovered/Resolved]
  - Product dose omission issue [Not Recovered/Not Resolved]

NARRATIVE: CASE EVENT DATE: 20201218
